FAERS Safety Report 20184662 (Version 3)
Quarter: 2022Q1

REPORT INFORMATION
  Report Type: Spontaneous
  Country: US (occurrence: US)
  Receive Date: 20211214
  Receipt Date: 20220209
  Transmission Date: 20220424
  Serious: Yes (Hospitalization)
  Sender: FDA-Public Use
  Company Number: US-BIOVITRUM-2021US11713

PATIENT
  Sex: Female

DRUGS (2)
  1. SYNAGIS [Suspect]
     Active Substance: PALIVIZUMAB
     Indication: Ventricular septal defect
     Dosage: (100MG/ML)
     Route: 030
     Dates: start: 20211014
  2. SYNAGIS [Suspect]
     Active Substance: PALIVIZUMAB
     Dates: start: 202110

REACTIONS (1)
  - Hospitalisation [Unknown]
